FAERS Safety Report 19906685 (Version 1)
Quarter: 2021Q3

REPORT INFORMATION
  Report Type: Spontaneous
  Country: US (occurrence: US)
  Receive Date: 20210930
  Receipt Date: 20210930
  Transmission Date: 20211014
  Serious: No
  Sender: FDA-Public Use
  Company Number: None

PATIENT
  Sex: Female

DRUGS (1)
  1. TREMFYA [Suspect]
     Active Substance: GUSELKUMAB
     Indication: PSORIASIS
     Dosage: ?          OTHER FREQUENCY: EVERY 8 WEEKS;?
     Route: 058
     Dates: start: 202109

REACTIONS (4)
  - Burning sensation [None]
  - Rash erythematous [None]
  - Pruritus [None]
  - Drug ineffective [None]
